FAERS Safety Report 23533357 (Version 6)
Quarter: 2024Q3

REPORT INFORMATION
  Report Type: Spontaneous
  Country: US (occurrence: US)
  Receive Date: 20240216
  Receipt Date: 20240723
  Transmission Date: 20241017
  Serious: Yes (Other)
  Sender: BRISTOL MYERS SQUIBB
  Company Number: US-BRISTOL-MYERS SQUIBB COMPANY-2024-023999

PATIENT
  Age: 73 Year
  Sex: Female

DRUGS (3)
  1. POMALYST [Suspect]
     Active Substance: POMALIDOMIDE
     Indication: Bone cancer
     Dosage: FREQUENCY: TAKE 1 (2MG) CAPSULE BY MOUTH DAILY FOR 21 DAYS ON THEN 7 DAYS OFF. REPEAT EVERY 28 DAYS
     Route: 048
     Dates: start: 20240208
  2. POMALYST [Suspect]
     Active Substance: POMALIDOMIDE
     Route: 048
  3. POMALYST [Suspect]
     Active Substance: POMALIDOMIDE
     Dosage: TAKE 1 CAPSULE BY MOUTH EVERY DAY FOR 21 DAYS ON FOLLOWED BY 7 DAYS OFF. REPEAT EVERY 28 DAYS
     Route: 048

REACTIONS (7)
  - Arthralgia [Recovering/Resolving]
  - Off label use [Unknown]
  - Gastrointestinal disorder [Recovering/Resolving]
  - White blood cell count decreased [Recovered/Resolved]
  - Red blood cell count decreased [Recovered/Resolved]
  - Full blood count decreased [Recovered/Resolved]
  - Product dose omission issue [Unknown]
